FAERS Safety Report 18548518 (Version 4)
Quarter: 2021Q2

REPORT INFORMATION
  Report Type: Report from Study
  Country: US (occurrence: US)
  Receive Date: 20201125
  Receipt Date: 20210408
  Transmission Date: 20210717
  Serious: Yes (Hospitalization, Other)
  Sender: FDA-Public Use
  Company Number: US-EISAI MEDICAL RESEARCH-EC-2020-082643

PATIENT
  Age: 68 Year
  Sex: Female

DRUGS (6)
  1. LENVIMA [Suspect]
     Active Substance: LENVATINIB
     Route: 048
     Dates: start: 20210330, end: 202104
  2. CARVEDILOL. [Concomitant]
     Active Substance: CARVEDILOL
  3. LENVIMA [Suspect]
     Active Substance: LENVATINIB
     Indication: ENDOMETRIAL CANCER
     Route: 048
     Dates: start: 20201020, end: 20201103
  4. LENVIMA [Suspect]
     Active Substance: LENVATINIB
     Dosage: 10 MG MONDAYS, WEDNESDAYS AND FRIDAYS
     Route: 048
     Dates: start: 20210114, end: 202103
  5. KEYTRUDA [Concomitant]
     Active Substance: PEMBROLIZUMAB
     Indication: ENDOMETRIAL CANCER
     Dosage: DOSE AND FREQUENCY UNKNOWN
     Route: 042
     Dates: end: 20201103
  6. LENVIMA [Suspect]
     Active Substance: LENVATINIB
     Route: 048
     Dates: start: 20201110, end: 202101

REACTIONS (17)
  - Decreased appetite [Unknown]
  - Oral pain [Not Recovered/Not Resolved]
  - Glossodynia [Not Recovered/Not Resolved]
  - Hypophagia [Unknown]
  - Hip fracture [Unknown]
  - Myalgia [Not Recovered/Not Resolved]
  - Dry mouth [Unknown]
  - Back pain [Not Recovered/Not Resolved]
  - Vomiting [Not Recovered/Not Resolved]
  - Dehydration [Unknown]
  - Mouth swelling [Unknown]
  - Feeling abnormal [Unknown]
  - Muscle spasms [Recovering/Resolving]
  - Vertigo [Unknown]
  - Fall [Unknown]
  - Off label use [Recovered/Resolved]
  - Gait disturbance [Unknown]

NARRATIVE: CASE EVENT DATE: 2020
